FAERS Safety Report 9940526 (Version 1)
Quarter: 2014Q1

REPORT INFORMATION
  Report Type: Spontaneous
  Country: FR (occurrence: FR)
  Receive Date: 20140303
  Receipt Date: 20140303
  Transmission Date: 20141002
  Serious: Yes (Hospitalization)
  Sender: FDA-Public Use
  Company Number: FR-BAYER-2014-026356

PATIENT
  Age: 26 Year
  Sex: Female

DRUGS (1)
  1. IZILOX [Suspect]
     Dosage: 400 MG, QD
     Route: 048
     Dates: start: 20140116, end: 20140120

REACTIONS (2)
  - Condition aggravated [Recovered/Resolved]
  - Electrocardiogram QT prolonged [Recovered/Resolved]
